FAERS Safety Report 25084482 (Version 2)
Quarter: 2025Q2

REPORT INFORMATION
  Report Type: Spontaneous
  Country: US (occurrence: US)
  Receive Date: 20250317
  Receipt Date: 20250620
  Transmission Date: 20250717
  Serious: Yes (Death)
  Sender: ELI LILLY AND COMPANY
  Company Number: US-ELI_LILLY_AND_COMPANY-US202503009832

PATIENT
  Age: 52 Year
  Sex: Male
  Weight: 95.964 kg

DRUGS (1)
  1. TALTZ [Suspect]
     Active Substance: IXEKIZUMAB
     Indication: Psoriatic arthropathy
     Dosage: 80 MG, MONTHLY (1/M), EVERY 4 WEEKS
     Route: 058
     Dates: start: 202409

REACTIONS (2)
  - Cardiovascular disorder [Fatal]
  - Off label use [Unknown]
